FAERS Safety Report 6744657-9 (Version None)
Quarter: 2010Q2

REPORT INFORMATION
  Report Type: 
  Country: None (occurrence: None)
  Receive Date: 20100527
  Receipt Date: 20100517
  Transmission Date: 20101027
  Serious: Yes (Other)
  Sender: FDA-Public Use
  Company Number: US-WYE-H14444510

PATIENT
  Sex: Male
  Weight: 77.18 kg

DRUGS (3)
  1. PRISTIQ [Suspect]
     Indication: DEPRESSION
     Route: 048
     Dates: start: 20080917
  2. PREDNISONE TAB [Concomitant]
     Indication: ACNE
     Dosage: 40 MG AT A REDUCING DOSE
     Route: 048
     Dates: end: 20100323
  3. ACCUTANE [Concomitant]
     Indication: ACNE
     Dosage: UNKNOWN
     Route: 048
     Dates: start: 20091126

REACTIONS (1)
  - SUICIDAL IDEATION [None]
